FAERS Safety Report 7126199-4 (Version None)
Quarter: 2010Q4

REPORT INFORMATION
  Report Type: 
  Country: None (occurrence: None)
  Receive Date: 20101129
  Receipt Date: 20090512
  Transmission Date: 20110411
  Serious: Yes (Death)
  Sender: FDA-Public Use
  Company Number: JP-PFIZER INC-2010156164

PATIENT
  Age: 84 Year
  Sex: Male

DRUGS (12)
  1. ANCARON [Suspect]
     Indication: VENTRICULAR TACHYCARDIA
     Dosage: 100 MG, 2X/DAY
     Route: 048
     Dates: start: 20071010, end: 20071110
  2. ANCARON [Suspect]
     Dosage: 150 MG, UNK
     Route: 042
     Dates: start: 20071010, end: 20071013
  3. 8-HOUR BAYER [Concomitant]
     Dosage: UNK
     Dates: start: 20071004, end: 20071110
  4. ARICEPT [Concomitant]
     Dosage: UNK
     Dates: start: 20071004, end: 20071110
  5. LIPITOR [Concomitant]
     Dosage: UNK
     Dates: start: 20071004, end: 20071110
  6. TICLOPIDINE HCL [Concomitant]
     Dosage: UNK
     Dates: start: 20071004, end: 20071110
  7. SENNOSIDE A [Concomitant]
     Dosage: UNK
     Dates: start: 20071004, end: 20071110
  8. SIGMART [Concomitant]
     Dosage: UNK
     Dates: start: 20071007, end: 20071107
  9. WARFARIN [Concomitant]
     Dosage: UNK
     Dates: start: 20071004, end: 20071110
  10. NIFEKALANT HYDROCHLORIDE [Concomitant]
     Dosage: UNK
     Dates: start: 20071010
  11. LIDOCAINE [Concomitant]
     Dosage: UNK
     Dates: start: 20071010
  12. SULPIRIDE [Concomitant]
     Dosage: UNK
     Dates: start: 20071004, end: 20071110

REACTIONS (1)
  - DEATH [None]
